FAERS Safety Report 6530774-5 (Version None)
Quarter: 2010Q1

REPORT INFORMATION
  Report Type: 
  Country: None (occurrence: None)
  Receive Date: 20100108
  Receipt Date: 20090205
  Transmission Date: 20100710
  Serious: No
  Sender: FDA-Public Use
  Company Number: A0766889A

PATIENT
  Age: 57 Year
  Sex: Female

DRUGS (7)
  1. LOVAZA [Suspect]
     Indication: MYOCARDIAL INFARCTION
     Dosage: 4G PER DAY
     Route: 048
     Dates: start: 20080101
  2. PLAVIX [Suspect]
     Indication: DRUG USE FOR UNKNOWN INDICATION
     Route: 065
     Dates: start: 20080301, end: 20080401
  3. ARMOUR [Concomitant]
  4. VALTREX [Concomitant]
  5. MUCINEX [Concomitant]
  6. SINGULAIR [Concomitant]
  7. ESTROGEN [Concomitant]

REACTIONS (1)
  - PURPURA [None]
